FAERS Safety Report 18894592 (Version 12)
Quarter: 2021Q4

REPORT INFORMATION
  Report Type: Report from Study
  Country: US (occurrence: US)
  Receive Date: 20210215
  Receipt Date: 20211028
  Transmission Date: 20220304
  Serious: No
  Sender: FDA-Public Use
  Company Number: US-GLAXOSMITHKLINE-US2020AMR229324

PATIENT
  Sex: Female

DRUGS (1)
  1. BELANTAMAB MAFODOTIN [Suspect]
     Active Substance: BELANTAMAB MAFODOTIN
     Indication: Product used for unknown indication
     Dosage: UNK

REACTIONS (4)
  - Keratopathy [Unknown]
  - Visual acuity reduced [Unknown]
  - Night blindness [Unknown]
  - Ophthalmological examination abnormal [Unknown]
